FAERS Safety Report 5360284-2 (Version None)
Quarter: 2007Q2

REPORT INFORMATION
  Report Type: 
  Country: None (occurrence: None)
  Receive Date: 20070614
  Receipt Date: 20070602
  Transmission Date: 20071010
  Serious: Yes (Other)
  Sender: FDA-Public Use
  Company Number: 2007SP011398

PATIENT
  Age: 12 Year
  Sex: Male

DRUGS (1)
  1. CLARITIN [Suspect]
     Indication: SEASONAL ALLERGY
     Dosage: 1 DF; ONCE; PO
     Route: 048
     Dates: start: 20070601

REACTIONS (2)
  - LIP SWELLING [None]
  - SWELLING FACE [None]
